FAERS Safety Report 18871516 (Version 1)
Quarter: 2021Q1

REPORT INFORMATION
  Report Type: Spontaneous
  Country: TR (occurrence: TR)
  Receive Date: 20210210
  Receipt Date: 20210210
  Transmission Date: 20210420
  Serious: Yes (Death)
  Sender: FDA-Public Use
  Company Number: TR-CHEPLA-C20210651_01

PATIENT
  Age: 65 Year
  Sex: Male

DRUGS (3)
  1. GANCICLOVIR. [Suspect]
     Active Substance: GANCICLOVIR
     Indication: PNEUMONIA CYTOMEGALOVIRAL
     Dosage: 5 MG/KG, DAILY
  2. CEFTAZIDIME. [Suspect]
     Active Substance: CEFTAZIDIME
     Dosage: 1 G, TID
  3. AMIKACIN. [Suspect]
     Active Substance: AMIKACIN
     Dosage: 500 MG, DAILY

REACTIONS (1)
  - Death [Fatal]
